FAERS Safety Report 13101972 (Version 2)
Quarter: 2017Q1

REPORT INFORMATION
  Report Type: Spontaneous
  Country: US (occurrence: US)
  Receive Date: 20170110
  Receipt Date: 20170202
  Transmission Date: 20170428
  Serious: Yes (Other)
  Sender: FDA-Public Use
  Company Number: US-APOTEX-2016AP011054

PATIENT
  Age: 36 Year
  Sex: Female

DRUGS (1)
  1. LITHIUM CARBONATE. [Suspect]
     Active Substance: LITHIUM CARBONATE
     Indication: AFFECTIVE DISORDER
     Route: 065

REACTIONS (4)
  - Ovarian cyst [Unknown]
  - Nephrolithiasis [Unknown]
  - Renal cyst [Unknown]
  - Cholelithiasis [Unknown]
